FAERS Safety Report 19787965 (Version 1)
Quarter: 2021Q3

REPORT INFORMATION
  Report Type: Spontaneous
  Country: CA (occurrence: CA)
  Receive Date: 20210903
  Receipt Date: 20210903
  Transmission Date: 20211014
  Serious: Yes (Other)
  Sender: FDA-Public Use
  Company Number: CA-TEVA-2021-CA-1947365

PATIENT
  Age: 72 Year
  Sex: Male
  Weight: 85 kg

DRUGS (2)
  1. CARBOPLATIN INJECTION? LIQ IV 10MG/ML [Suspect]
     Active Substance: CARBOPLATIN
     Indication: TONGUE NEOPLASM MALIGNANT STAGE UNSPECIFIED
     Route: 042
  2. PACLITAXEL INJECTION [Concomitant]
     Active Substance: PACLITAXEL
     Route: 042

REACTIONS (2)
  - Flushing [Recovered/Resolved]
  - Blood pressure decreased [Recovered/Resolved]
